FAERS Safety Report 19011089 (Version 1)
Quarter: 2021Q1

REPORT INFORMATION
  Report Type: Spontaneous
  Country: US (occurrence: US)
  Receive Date: 20210312
  Receipt Date: 20210312
  Transmission Date: 20210420
  Serious: Yes (Hospitalization)
  Sender: FDA-Public Use
  Company Number: None

PATIENT
  Age: 53 Year
  Sex: Female
  Weight: 109.5 kg

DRUGS (15)
  1. DESVELAFAXINE [Concomitant]
  2. GABAPENTIN. [Concomitant]
     Active Substance: GABAPENTIN
  3. LOSARTAN. [Concomitant]
     Active Substance: LOSARTAN
  4. ALPRAZOLAM. [Concomitant]
     Active Substance: ALPRAZOLAM
  5. ABRAXANE [Suspect]
     Active Substance: PACLITAXEL
     Indication: BREAST CANCER
     Dosage: ?          OTHER FREQUENCY:WEEKLY X 12 DOSES;?
     Route: 041
     Dates: start: 20201211, end: 20210308
  6. EMLA [Concomitant]
     Active Substance: LIDOCAINE\PRILOCAINE
     Dates: start: 20201214
  7. CLARTIN [Concomitant]
     Dates: start: 20210111
  8. DOXYCYCLINE. [Concomitant]
     Active Substance: DOXYCYCLINE
     Dates: start: 20210222
  9. DURVALUMAB. [Suspect]
     Active Substance: DURVALUMAB
     Indication: BREAST CANCER
     Dosage: ?          OTHER FREQUENCY:Q 2 WEEKS;?
     Route: 041
     Dates: start: 20201211, end: 20210301
  10. ALBUTEROL. [Concomitant]
     Active Substance: ALBUTEROL
  11. OMEPRAZOLE. [Concomitant]
     Active Substance: OMEPRAZOLE
  12. IMODIUM [Concomitant]
     Active Substance: LOPERAMIDE HYDROCHLORIDE
     Dates: start: 20210125
  13. COMPAZINE [Concomitant]
     Active Substance: PROCHLORPERAZINE MALEATE
     Dates: start: 20210119
  14. KCL [Concomitant]
     Active Substance: POTASSIUM CHLORIDE
     Dates: start: 20210125, end: 20210125
  15. CLINDAMYCIN?BENZOYL [Concomitant]
     Dates: start: 20210204

REACTIONS (1)
  - Colitis [None]

NARRATIVE: CASE EVENT DATE: 20210311
